FAERS Safety Report 21009399 (Version 1)
Quarter: 2022Q2

REPORT INFORMATION
  Report Type: Spontaneous
  Country: US (occurrence: None)
  Receive Date: 20220624
  Receipt Date: 20220624
  Transmission Date: 20220721
  Serious: Yes (Other)
  Sender: FDA-Public Use
  Company Number: None

PATIENT
  Age: 64 Year
  Sex: Female
  Weight: 85.95 kg

DRUGS (4)
  1. LETROZOLE [Suspect]
     Active Substance: LETROZOLE
     Indication: Breast cancer
     Dosage: FREQUENCY : DAILY;?
     Route: 048
  2. EXCEDRIN MIGRAINE [Concomitant]
  3. TYLENOL [Concomitant]
  4. Bayer asprin [Concomitant]

REACTIONS (17)
  - Pain [None]
  - Insomnia [None]
  - Peripheral swelling [None]
  - Skin discolouration [None]
  - Wound [None]
  - Fungal infection [None]
  - Drug ineffective [None]
  - Vasculitis [None]
  - Scar [None]
  - Back pain [None]
  - Abdominal pain [None]
  - Oesophageal ulcer [None]
  - Mouth ulceration [None]
  - Urinary retention [None]
  - Renal pain [None]
  - Muscle spasms [None]
  - Fall [None]

NARRATIVE: CASE EVENT DATE: 20180505
